FAERS Safety Report 21877997 (Version 1)
Quarter: 2023Q1

REPORT INFORMATION
  Report Type: Spontaneous
  Country: US (occurrence: None)
  Receive Date: 20230117
  Receipt Date: 20230117
  Transmission Date: 20230418
  Serious: Yes (Hospitalization)
  Sender: FDA-Public Use
  Company Number: None

PATIENT
  Sex: Male
  Weight: 103 kg

DRUGS (15)
  1. FLUOROURACIL [Suspect]
     Active Substance: FLUOROURACIL
  2. CAMPTOSAR [Concomitant]
     Active Substance: IRINOTECAN HYDROCHLORIDE
  3. LEUCOVORIN CALCIUM [Concomitant]
  4. ELOXATIN [Concomitant]
     Active Substance: OXALIPLATIN
  5. ACTHIB [Concomitant]
  6. BEXSERO [Concomitant]
  7. DILAUDID [Concomitant]
  8. GRAVOL [Concomitant]
  9. POLYETHYLENE GLYCOL 3350 [Concomitant]
     Active Substance: POLYETHYLENE GLYCOL 3350
  10. MENVEO [Concomitant]
  11. NAPROXEN [Concomitant]
  12. OMEPRAZOLE [Concomitant]
  13. PANTOLOC [Concomitant]
  14. PREVNAR13 [Concomitant]
  15. TYLENOL [Concomitant]

REACTIONS (10)
  - Pyrexia [None]
  - Abdominal pain [None]
  - Flank pain [None]
  - Abscess [None]
  - Post procedural complication [None]
  - Arthritis [None]
  - Joint injury [None]
  - Pathogen resistance [None]
  - Peripancreatic fluid collection [None]
  - Splenectomy [None]

NARRATIVE: CASE EVENT DATE: 20221227
